FAERS Safety Report 20577985 (Version 1)
Quarter: 2022Q1

REPORT INFORMATION
  Report Type: Spontaneous
  Country: IE (occurrence: IE)
  Receive Date: 20220310
  Receipt Date: 20220310
  Transmission Date: 20220423
  Serious: Yes (Other)
  Sender: FDA-Public Use
  Company Number: IE-MYLANLABS-2022M1018437

PATIENT
  Age: 5 Decade
  Sex: Female

DRUGS (1)
  1. IBUPROFEN [Suspect]
     Active Substance: IBUPROFEN
     Indication: Arthralgia
     Dosage: ON AND OFF
     Route: 065

REACTIONS (2)
  - Small intestinal stenosis [Recovering/Resolving]
  - Small intestine ulcer [Recovering/Resolving]
